FAERS Safety Report 25859856 (Version 1)
Quarter: 2025Q3

REPORT INFORMATION
  Report Type: Spontaneous
  Country: EU (occurrence: EU)
  Receive Date: 20250929
  Receipt Date: 20250929
  Transmission Date: 20251021
  Serious: Yes (Other)
  Sender: MERCK SHARP & DOHME LLC
  Company Number: EU-009507513-2331002

PATIENT
  Age: 67 Year
  Sex: Female

DRUGS (1)
  1. PEMBROLIZUMAB [Suspect]
     Active Substance: PEMBROLIZUMAB
     Indication: Malignant melanoma
     Dates: start: 202405

REACTIONS (10)
  - Hepatic cytolysis [Unknown]
  - Alanine aminotransferase increased [Unknown]
  - Jaundice cholestatic [Unknown]
  - Cholestasis [Unknown]
  - Abdominal pain upper [Unknown]
  - Autoimmune hepatitis [Unknown]
  - Urine osmolarity increased [Unknown]
  - Asthenia [Unknown]
  - Hepatitis viral [Unknown]
  - Aspartate aminotransferase increased [Unknown]
